FAERS Safety Report 23320687 (Version 1)
Quarter: 2023Q4

REPORT INFORMATION
  Report Type: Spontaneous
  Country: FR (occurrence: FR)
  Receive Date: 20231220
  Receipt Date: 20231220
  Transmission Date: 20240110
  Serious: Yes (Death, Other)
  Sender: FDA-Public Use
  Company Number: None

PATIENT
  Age: 56 Year
  Sex: Male
  Weight: 78 kg

DRUGS (4)
  1. YERVOY [Suspect]
     Active Substance: IPILIMUMAB
     Indication: Neoadjuvant therapy
     Route: 042
     Dates: start: 20210705, end: 20210719
  2. YERVOY [Suspect]
     Active Substance: IPILIMUMAB
     Indication: Rectal adenocarcinoma
  3. OPDIVO [Suspect]
     Active Substance: NIVOLUMAB
     Indication: Neoadjuvant therapy
     Route: 042
     Dates: start: 20210705, end: 20210719
  4. OPDIVO [Suspect]
     Active Substance: NIVOLUMAB
     Indication: Rectal adenocarcinoma

REACTIONS (2)
  - Postoperative ileus [Fatal]
  - Cardio-respiratory arrest [Fatal]

NARRATIVE: CASE EVENT DATE: 20211003
